FAERS Safety Report 19649637 (Version 1)
Quarter: 2021Q3

REPORT INFORMATION
  Report Type: Other
  Country: TW (occurrence: TW)
  Receive Date: 20210803
  Receipt Date: 20210803
  Transmission Date: 20211014
  Serious: Yes (Death)
  Sender: FDA-Public Use
  Company Number: TW-ROCHE-2881857

PATIENT
  Age: 69 Year
  Sex: Male

DRUGS (1)
  1. TECENTRIQ [Suspect]
     Active Substance: ATEZOLIZUMAB
     Indication: SMALL CELL LUNG CANCER EXTENSIVE STAGE
     Route: 065

REACTIONS (1)
  - Drug intolerance [Fatal]

NARRATIVE: CASE EVENT DATE: 202107
